FAERS Safety Report 6968007-8 (Version None)
Quarter: 2010Q3

REPORT INFORMATION
  Report Type: 
  Country: None (occurrence: None)
  Receive Date: 20100907
  Receipt Date: 20100825
  Transmission Date: 20110219
  Serious: Yes (Hospitalization)
  Sender: FDA-Public Use
  Company Number: A0879147A

PATIENT
  Age: 56 Year
  Sex: Female

DRUGS (1)
  1. AVANDIA [Suspect]
     Indication: DIABETES MELLITUS
     Dates: start: 20010101, end: 20041101

REACTIONS (4)
  - HALLUCINATION [None]
  - PANCREATIC INSUFFICIENCY [None]
  - PARALYSIS [None]
  - PATELLA FRACTURE [None]
